FAERS Safety Report 18564803 (Version 1)
Quarter: 2020Q4

REPORT INFORMATION
  Report Type: Spontaneous
  Country: FR (occurrence: FR)
  Receive Date: 20201201
  Receipt Date: 20201201
  Transmission Date: 20210114
  Serious: Yes (Other)
  Sender: FDA-Public Use
  Company Number: FR-PFIZER INC-2020466918

PATIENT
  Age: 88 Year
  Sex: Male
  Weight: 85 kg

DRUGS (4)
  1. PREVISCAN [FLUINDIONE] [Concomitant]
     Active Substance: FLUINDIONE
  2. RAMIPRIL. [Concomitant]
     Active Substance: RAMIPRIL
     Dosage: 2.5  MORNING
  3. VYNDAQEL [Suspect]
     Active Substance: TAFAMIDIS MEGLUMINE
     Dosage: 20 MG, DAILY
     Dates: end: 20201117
  4. CORTANCYL [Concomitant]
     Active Substance: PREDNISONE
     Dosage: 40 MG

REACTIONS (1)
  - Cardiac failure chronic [Unknown]
